FAERS Safety Report 7514257-1 (Version None)
Quarter: 2011Q2

REPORT INFORMATION
  Report Type: 
  Country: None (occurrence: None)
  Receive Date: 20110601
  Receipt Date: 20110525
  Transmission Date: 20111010
  Serious: Yes (Hospitalization)
  Sender: FDA-Public Use
  Company Number: DE-BRISTOL-MYERS SQUIBB COMPANY-15780752

PATIENT
  Sex: Male
  Weight: 100 kg

DRUGS (1)
  1. ABILIFY [Suspect]
     Dosage: INGESTED 40 - 50 ARIPIPRAZOLE 10 MG TABLETS.
     Route: 048

REACTIONS (3)
  - INTENTIONAL OVERDOSE [None]
  - NERVOUS SYSTEM DISORDER [None]
  - SUICIDE ATTEMPT [None]
